FAERS Safety Report 12419361 (Version 1)
Quarter: 2016Q2

REPORT INFORMATION
  Report Type: Spontaneous
  Country: US (occurrence: None)
  Receive Date: 20160527
  Receipt Date: 20160527
  Transmission Date: 20160815
  Serious: Yes (Hospitalization, Disabling, Other)
  Sender: FDA-Public Use
  Company Number: None

PATIENT
  Age: 41 Year
  Sex: Female
  Weight: 88.45 kg

DRUGS (5)
  1. MULTI VITAMIN [Concomitant]
     Active Substance: VITAMINS
  2. ADVIL [Concomitant]
     Active Substance: IBUPROFEN
  3. MIDOL [Concomitant]
     Active Substance: IBUPROFEN
  4. MIRENA [Suspect]
     Active Substance: LEVONORGESTREL
  5. ALEVE [Concomitant]
     Active Substance: NAPROXEN SODIUM

REACTIONS (7)
  - Amenorrhoea [None]
  - Fatigue [None]
  - Feeling abnormal [None]
  - Depression [None]
  - Weight fluctuation [None]
  - Headache [None]
  - Muscle spasms [None]

NARRATIVE: CASE EVENT DATE: 20120715
